FAERS Safety Report 19609173 (Version 1)
Quarter: 2021Q3

REPORT INFORMATION
  Report Type: Other
  Country: NL (occurrence: NL)
  Receive Date: 20210726
  Receipt Date: 20210726
  Transmission Date: 20211014
  Serious: Yes (Hospitalization, Other)
  Sender: FDA-Public Use
  Company Number: NL-APOTEX-2021AP023783

PATIENT
  Sex: Female

DRUGS (2)
  1. PAROXETINE TABLET [Suspect]
     Active Substance: PAROXETINE
     Indication: DEPRESSION
     Dosage: 1 DOSAGE FORM, QD (FIRST 1 X A DAY 1 PIECE, LATER 1 X A DAY HALF A PIECE)
     Route: 065
     Dates: start: 201507
  2. PAROXETINE TABLET [Suspect]
     Active Substance: PAROXETINE
     Indication: ANXIETY

REACTIONS (3)
  - Suicide attempt [Recovered/Resolved]
  - Weight increased [Recovered/Resolved]
  - Suicidal ideation [Recovered/Resolved]
